FAERS Safety Report 23976974 (Version 1)
Quarter: 2024Q2

REPORT INFORMATION
  Report Type: Spontaneous
  Country: US (occurrence: US)
  Receive Date: 20240614
  Receipt Date: 20240614
  Transmission Date: 20240716
  Serious: No
  Sender: FDA-Public Use
  Company Number: US-PFIZER INC-202400192578

PATIENT
  Age: 24 Year
  Sex: Male

DRUGS (1)
  1. EUCRISA [Suspect]
     Active Substance: CRISABOROLE
     Indication: Dermatitis atopic
     Dosage: APPLY EVERY DAY TRUNK AND EXTREMITIES AS A MAINTENANCE
     Route: 061
     Dates: start: 202007

REACTIONS (1)
  - Drug ineffective [Unknown]
